FAERS Safety Report 10726219 (Version 10)
Quarter: 2019Q3

REPORT INFORMATION
  Report Type: Report from Study
  Country: DE (occurrence: DE)
  Receive Date: 20150121
  Receipt Date: 20190921
  Transmission Date: 20191004
  Serious: Yes (Other)
  Sender: FDA-Public Use
  Company Number: PHHY2015DE003478

PATIENT
  Age: 50 Year
  Sex: Female

DRUGS (15)
  1. TRIAMCINOLON//TRIAMCINOLONE [Concomitant]
     Dosage: 40 MG
     Route: 065
     Dates: start: 20141114, end: 20141114
  2. MADOPAR [Concomitant]
     Active Substance: BENSERAZIDE HYDROCHLORIDE\LEVODOPA
     Indication: PAIN IN EXTREMITY
     Dosage: 125 MG, UNK
     Route: 065
     Dates: start: 20141112, end: 20141112
  3. MADOPAR [Concomitant]
     Active Substance: BENSERAZIDE HYDROCHLORIDE\LEVODOPA
     Indication: PAIN IN EXTREMITY
  4. ATROPIN [Concomitant]
     Active Substance: ATROPINE
     Indication: INTRA-UTERINE CONTRACEPTIVE DEVICE INSERTION
     Dosage: UNK
     Route: 065
     Dates: start: 20141111, end: 20141111
  5. L-THYROXIN [Concomitant]
     Active Substance: LEVOTHYROXINE SODIUM
     Indication: HYPOTHYROIDISM
     Dosage: 75 UG, QD
     Route: 048
     Dates: start: 20141002
  6. MIRENA [Concomitant]
     Active Substance: LEVONORGESTREL
     Indication: CONTRACEPTION
     Dosage: UNK
     Route: 065
     Dates: start: 20141111
  7. BUSCOPAN [Concomitant]
     Active Substance: BUTYLSCOPOLAMINE BROMIDE
     Indication: INTRA-UTERINE CONTRACEPTIVE DEVICE INSERTION
  8. PANTOZOL [Concomitant]
     Active Substance: PANTOPRAZOLE SODIUM
     Indication: PROPHYLAXIS
  9. GILENYA [Suspect]
     Active Substance: FINGOLIMOD HYDROCHLORIDE
     Indication: MULTIPLE SCLEROSIS
     Dosage: 0.5 MG, QD
     Route: 048
     Dates: start: 20140925, end: 20150625
  10. FRAGMIN [Concomitant]
     Active Substance: DALTEPARIN SODIUM
     Dosage: 2500 IU, UNK
     Route: 065
     Dates: start: 20141114, end: 20141114
  11. TRIAMCINOLON//TRIAMCINOLONE [Concomitant]
     Indication: MULTIPLE SCLEROSIS
     Dosage: 40 MG
     Route: 065
     Dates: start: 20141112, end: 20141112
  12. PANTOZOL [Concomitant]
     Active Substance: PANTOPRAZOLE SODIUM
     Indication: PROPHYLAXIS
     Dosage: 40 MG, UNK
     Route: 065
     Dates: start: 20141114, end: 20141122
  13. ATROPIN [Concomitant]
     Active Substance: ATROPINE
     Indication: INTRA-UTERINE CONTRACEPTIVE DEVICE INSERTION
  14. FRAGMIN [Concomitant]
     Active Substance: DALTEPARIN SODIUM
     Indication: THROMBOSIS PROPHYLAXIS
     Dosage: 2500 IU, UNK
     Route: 065
     Dates: start: 20141112, end: 20141112
  15. BUSCOPAN [Concomitant]
     Active Substance: BUTYLSCOPOLAMINE BROMIDE
     Indication: INTRA-UTERINE CONTRACEPTIVE DEVICE INSERTION
     Dosage: UNK
     Route: 065
     Dates: start: 20141111, end: 20141111

REACTIONS (16)
  - Eczema [Recovered/Resolved]
  - Myalgia [Not Recovered/Not Resolved]
  - Gastrooesophageal reflux disease [Not Recovered/Not Resolved]
  - Epilepsy [Recovering/Resolving]
  - Headache [Recovered/Resolved]
  - Breast fibroma [Recovered/Resolved]
  - Nasopharyngitis [Recovered/Resolved]
  - Neutrophil count decreased [Unknown]
  - Arthralgia [Not Recovered/Not Resolved]
  - Biopsy breast abnormal [Recovered/Resolved]
  - Partial seizures [Recovering/Resolving]
  - Alopecia [Recovered/Resolved]
  - Gamma-glutamyltransferase decreased [Unknown]
  - Nausea [Recovered/Resolved]
  - Lymphocyte count decreased [Unknown]
  - White blood cell count decreased [Unknown]

NARRATIVE: CASE EVENT DATE: 20141006
